FAERS Safety Report 12075891 (Version 3)
Quarter: 2016Q1

REPORT INFORMATION
  Report Type: Report from Study
  Country: CH (occurrence: CH)
  Receive Date: 20160214
  Receipt Date: 20160323
  Transmission Date: 20160526
  Serious: Yes (Hospitalization, Other)
  Sender: FDA-Public Use
  Company Number: CH-BRISTOL-MYERS SQUIBB COMPANY-BMS-2016-007304

PATIENT
  Age: 74 Year
  Sex: Female
  Weight: 63 kg

DRUGS (15)
  1. DEXAMETHASONE. [Suspect]
     Active Substance: DEXAMETHASONE
     Dosage: 1 UNK, UNK
     Route: 048
     Dates: start: 20140218
  2. DEXAMETHASONE. [Suspect]
     Active Substance: DEXAMETHASONE
     Dosage: 1 DF, UNK
     Route: 048
     Dates: start: 20151005
  3. LENALIDOMIDE [Suspect]
     Active Substance: LENALIDOMIDE
     Dosage: 10 MG, UNK
     Route: 048
     Dates: start: 20151221, end: 20160104
  4. DEXAMETHASONE. [Suspect]
     Active Substance: DEXAMETHASONE
     Dosage: 1 DF, UNK
     Route: 048
     Dates: start: 20150714
  5. LENALIDOMIDE [Suspect]
     Active Substance: LENALIDOMIDE
     Dosage: 1 UNK, UNK
     Route: 048
     Dates: start: 20151005, end: 20151109
  6. DEXAMETHASONE. [Suspect]
     Active Substance: DEXAMETHASONE
     Dosage: 1 DF, UNK
     Route: 048
     Dates: start: 20140830
  7. ASPIRIN CARDIO [Concomitant]
     Active Substance: ASPIRIN
     Indication: THROMBOSIS PROPHYLAXIS
     Dosage: 100 MG, QD
     Route: 065
     Dates: start: 20151221, end: 20160105
  8. LENALIDOMIDE [Suspect]
     Active Substance: LENALIDOMIDE
     Indication: PLASMA CELL MYELOMA
     Dosage: 1 DF, UNK
     Route: 048
     Dates: start: 20130610
  9. DEXAMETHASONE. [Suspect]
     Active Substance: DEXAMETHASONE
     Indication: PLASMA CELL MYELOMA
     Dosage: 1 DF, UNK
     Route: 048
     Dates: start: 20130610
  10. DEXAMETHASONE. [Suspect]
     Active Substance: DEXAMETHASONE
     Dosage: 1 DF, UNK
     Route: 048
     Dates: start: 20150910
  11. CALCIUM [Concomitant]
     Active Substance: CALCIUM
     Indication: PRODUCT USED FOR UNKNOWN INDICATION
     Dosage: UNK UNK, QD
     Route: 065
  12. VALTREX [Concomitant]
     Active Substance: VALACYCLOVIR HYDROCHLORIDE
     Indication: PRODUCT USED FOR UNKNOWN INDICATION
     Dosage: 500 MG, QD
     Route: 065
  13. LENALIDOMIDE [Suspect]
     Active Substance: LENALIDOMIDE
     Dosage: 1 DF, UNK
     Route: 048
     Dates: start: 20140716
  14. ELOTUZUMAB [Suspect]
     Active Substance: ELOTUZUMAB
     Indication: PLASMA CELL MYELOMA
     Dosage: 610 MG, QWK
     Route: 042
     Dates: start: 20151221, end: 20160105
  15. FORTECORTIN                        /00016001/ [Concomitant]
     Active Substance: DEXAMETHASONE
     Indication: PRODUCT USED FOR UNKNOWN INDICATION
     Dosage: 20 MG, QWK
     Route: 065

REACTIONS (8)
  - Musculoskeletal pain [Unknown]
  - Intestinal obstruction [Recovered/Resolved]
  - Malignant neoplasm progression [Unknown]
  - Acute kidney injury [Recovering/Resolving]
  - Osteochondritis [Unknown]
  - Urosepsis [Recovered/Resolved]
  - Pancytopenia [Recovered/Resolved]
  - Escherichia bacteraemia [Recovered/Resolved]

NARRATIVE: CASE EVENT DATE: 20151230
